FAERS Safety Report 9069504 (Version 1)
Quarter: 2013Q1

REPORT INFORMATION
  Report Type: Spontaneous
  Country: US (occurrence: US)
  Receive Date: 20130215
  Receipt Date: 20130215
  Transmission Date: 20140127
  Serious: Yes (Other)
  Sender: FDA-Public Use
  Company Number: CHPA2013US002944

PATIENT
  Age: 66 Year
  Sex: Male

DRUGS (7)
  1. MYOFLEX ANALGESIC CREME [Suspect]
     Indication: FEELING OF RELAXATION
     Dosage: UNK, PRIMARLY EVERY MORNING AND NIGHT OR MAYBE TWICE A WEEK DURING THE DAY
     Route: 061
     Dates: end: 201302
  2. WARFARIN [Concomitant]
     Dosage: UNK, UNK
  3. CARVEDILOL [Concomitant]
     Dosage: UNK, UNK
  4. DIOVAN [Concomitant]
     Dosage: UNK, UNK
  5. CRESTOR [Concomitant]
     Dosage: UNK, UNK
  6. MORPHINE [Concomitant]
     Dosage: UNK, UNK
  7. CITALOPRAM [Concomitant]
     Dosage: UNK, UNK

REACTIONS (2)
  - Myocardial infarction [Recovered/Resolved]
  - Off label use [Unknown]
